FAERS Safety Report 16732038 (Version 1)
Quarter: 2019Q3

REPORT INFORMATION
  Report Type: Report from Study
  Country: US (occurrence: US)
  Receive Date: 20190822
  Receipt Date: 20190822
  Transmission Date: 20191005
  Serious: Yes (Other)
  Sender: FDA-Public Use
  Company Number: US-SHIRE-US201926771

PATIENT
  Age: 54 Year

DRUGS (1)
  1. XIIDRA [Suspect]
     Active Substance: LIFITEGRAST
     Indication: PRODUCT USED FOR UNKNOWN INDICATION
     Dosage: UNK, 2X/DAY:BID
     Route: 047
     Dates: start: 20190812, end: 20190812

REACTIONS (5)
  - Eye irritation [Recovering/Resolving]
  - Hypersensitivity [Recovering/Resolving]
  - Ocular hyperaemia [Recovering/Resolving]
  - Eye infection [Recovering/Resolving]
  - Eye swelling [Recovering/Resolving]

NARRATIVE: CASE EVENT DATE: 20190812
